FAERS Safety Report 22178273 (Version 1)
Quarter: 2023Q2

REPORT INFORMATION
  Report Type: Spontaneous
  Country: GB (occurrence: GB)
  Receive Date: 20230405
  Receipt Date: 20230405
  Transmission Date: 20230722
  Serious: Yes (Life-Threatening, Hospitalization, Other)
  Sender: FDA-Public Use
  Company Number: None

PATIENT
  Age: 56 Year
  Sex: Male

DRUGS (9)
  1. INSULIN HUMAN [Suspect]
     Active Substance: INSULIN HUMAN
     Indication: Product used for unknown indication
     Dosage: 14 INTERNATIONAL UNIT, EACH MORNING
     Route: 065
     Dates: start: 20230319
  2. INSULIN HUMAN [Suspect]
     Active Substance: INSULIN HUMAN
     Dosage: 10 INTERNATIONAL UNIT, EACH EVENING
     Route: 065
     Dates: start: 20230319
  3. INSULIN HUMAN [Suspect]
     Active Substance: INSULIN HUMAN
     Dosage: 10 INTERNATIONAL UNIT, EACH MORNING
     Route: 065
     Dates: start: 20230319
  4. INSULIN HUMAN [Suspect]
     Active Substance: INSULIN HUMAN
     Dosage: 10 INTERNATIONAL UNIT, EACH EVENING
     Route: 065
     Dates: start: 20230319
  5. GABAPENTIN [Concomitant]
     Active Substance: GABAPENTIN
     Indication: Product used for unknown indication
  6. CREON [Concomitant]
     Active Substance: PANCRELIPASE AMYLASE\PANCRELIPASE LIPASE\PANCRELIPASE PROTEASE
     Indication: Product used for unknown indication
     Dosage: 3 DOSAGE FORM, TID
     Route: 065
  7. ACETAMINOPHEN [Concomitant]
     Active Substance: ACETAMINOPHEN
     Indication: Product used for unknown indication
     Dosage: 500MG/1G; TO BE TAKEN FOUR TIMES DAILY (QDS)
  8. WARFARIN [Concomitant]
     Active Substance: WARFARIN
     Indication: Portal vein thrombosis
     Dosage: 5 MG, FROM MON TO SAT
     Route: 065
  9. WARFARIN [Concomitant]
     Active Substance: WARFARIN
     Dosage: 6 MG, WEEKLY (1/W), SUN
     Route: 065

REACTIONS (3)
  - Coma scale abnormal [Unknown]
  - Seizure [Unknown]
  - Hypoglycaemia [Recovering/Resolving]
